FAERS Safety Report 5311808-2 (Version None)
Quarter: 2007Q2

REPORT INFORMATION
  Report Type: 
  Country: None (occurrence: None)
  Receive Date: 20070430
  Receipt Date: 20070208
  Transmission Date: 20071010
  Serious: No
  Sender: FDA-Public Use
  Company Number: 2001UW06977

PATIENT
  Sex: Female

DRUGS (8)
  1. NEXIUM [Suspect]
     Indication: ABDOMINAL DISTENSION
     Route: 048
     Dates: start: 20060201
  2. NEXIUM [Suspect]
     Indication: GASTROOESOPHAGEAL REFLUX DISEASE
     Route: 048
     Dates: start: 20060201
  3. NEXIUM [Suspect]
     Route: 048
  4. NEXIUM [Suspect]
     Route: 048
  5. ZOLOFT [Concomitant]
  6. XANAX [Concomitant]
  7. CHLORDISAMINE [Concomitant]
     Indication: ANXIETY
  8. DICYCLOMINE [Concomitant]

REACTIONS (3)
  - DIARRHOEA [None]
  - DRUG INEFFECTIVE [None]
  - MUSCLE SPASMS [None]
